FAERS Safety Report 9637806 (Version 1)
Quarter: 2013Q4

REPORT INFORMATION
  Report Type: Spontaneous
  Country: US (occurrence: None)
  Receive Date: 20131018
  Receipt Date: 20131018
  Transmission Date: 20140711
  Serious: Yes (Hospitalization)
  Sender: FDA-Public Use
  Company Number: 7242225

PATIENT
  Age: 85 Year
  Sex: Male

DRUGS (6)
  1. LEVOTHYROX [Suspect]
     Indication: HYPOTHYROIDISM
     Dosage: 1 DF (1 DF 1 IN-2)
     Route: 048
  2. COLCHIMAX [Suspect]
     Dosage: ON DEMAND (1 IN 1 D)
     Route: 048
  3. ATORVASTATIN [Suspect]
  4. SPIRONOLACTONE [Suspect]
     Indication: HYPERTENSION
     Dosage: 1 DEF (1 DF, 1 IN 1 D)
     Route: 048
  5. ALTIZIDE W/SPIRONOLACTONE [Suspect]
     Indication: HYPERTENSION
     Dosage: 1 DEF (1 DEF, 1 IN 1 D)
     Route: 048
  6. TEGRETOL [Suspect]
     Indication: EPILEPSY

REACTIONS (5)
  - Nausea [None]
  - Malaise [None]
  - Fatigue [None]
  - Vomiting [None]
  - Loss of consciousness [None]
